FAERS Safety Report 9003866 (Version 1)
Quarter: 2013Q1

REPORT INFORMATION
  Report Type: Spontaneous
  Country: US (occurrence: US)
  Receive Date: 20130108
  Receipt Date: 20130108
  Transmission Date: 20140127
  Serious: No
  Sender: FDA-Public Use
  Company Number: US-GLAXOSMITHKLINE-A0998195A

PATIENT
  Age: 64 Year
  Sex: Female

DRUGS (5)
  1. LOVAZA [Suspect]
     Indication: BLOOD TRIGLYCERIDES INCREASED
     Dosage: 4TAB PER DAY
     Route: 048
     Dates: start: 201204
  2. SIMVASTATIN [Concomitant]
  3. PREMPRO [Concomitant]
  4. VIOXX [Concomitant]
  5. OXYCONTIN [Concomitant]

REACTIONS (3)
  - Nausea [Recovered/Resolved]
  - Eructation [Unknown]
  - Product quality issue [Unknown]
